FAERS Safety Report 6214797-1 (Version None)
Quarter: 2009Q2

REPORT INFORMATION
  Report Type: 
  Country: None (occurrence: None)
  Receive Date: 20090604
  Receipt Date: 20090528
  Transmission Date: 20091009
  Serious: Yes (Other)
  Sender: FDA-Public Use
  Company Number: B0571078A

PATIENT
  Sex: Male
  Weight: 31 kg

DRUGS (6)
  1. RELENZA [Suspect]
     Indication: INFLUENZA
     Dosage: 10MG TWICE PER DAY
     Route: 055
     Dates: start: 20090413, end: 20090417
  2. CLARITHROMYCIN [Concomitant]
     Indication: BRONCHITIS
     Dosage: 900MG PER DAY
     Route: 048
     Dates: start: 20090413, end: 20090419
  3. ASVERIN [Concomitant]
     Indication: BRONCHITIS
     Route: 048
     Dates: start: 20090413, end: 20090419
  4. BIOFERMIN [Concomitant]
     Indication: GASTROENTERITIS
     Dosage: 9G PER DAY
     Route: 048
     Dates: start: 20090413, end: 20090419
  5. CALONAL [Concomitant]
     Indication: ANTIPYRESIS
     Dosage: 9G PER DAY
     Route: 048
     Dates: start: 20090413, end: 20090418
  6. HOKUNALIN [Concomitant]
     Indication: BRONCHITIS
     Dosage: 2MG PER DAY
     Route: 062
     Dates: start: 20090413, end: 20090419

REACTIONS (5)
  - ABNORMAL BEHAVIOUR [None]
  - DYSPHORIA [None]
  - IRRITABILITY [None]
  - LIMB DISCOMFORT [None]
  - PARAESTHESIA [None]
